FAERS Safety Report 24667502 (Version 1)
Quarter: 2024Q4

REPORT INFORMATION
  Report Type: Spontaneous
  Country: GB (occurrence: GB)
  Receive Date: 20241126
  Receipt Date: 20241126
  Transmission Date: 20250114
  Serious: Yes (Other)
  Sender: BIOGEN
  Company Number: GB-BIOGEN-2024BI01291586

PATIENT
  Sex: Male

DRUGS (1)
  1. DALFAMPRIDINE [Suspect]
     Active Substance: DALFAMPRIDINE
     Indication: Multiple sclerosis
     Dosage: MAINTENANCE PACK (56) FAMPYRA 10MG MODIFIED-RELEASE TABLETS (BIOGEN IDEC LTD) 4 X 14 TABLETS
     Route: 050

REACTIONS (1)
  - Cerebrovascular accident [Unknown]
